FAERS Safety Report 9446475 (Version 1)
Quarter: 2013Q3

REPORT INFORMATION
  Report Type: Spontaneous
  Country: US (occurrence: US)
  Receive Date: 20130807
  Receipt Date: 20130807
  Transmission Date: 20140515
  Serious: No
  Sender: FDA-Public Use
  Company Number: US-AMGEN-USASP2013050319

PATIENT
  Age: 70 Year
  Sex: Male

DRUGS (15)
  1. ENBREL [Suspect]
     Indication: PRODUCT USED FOR UNKNOWN INDICATION
     Dosage: UNK
     Route: 065
  2. AMARYL [Concomitant]
     Dosage: 2 MG, TID
     Route: 048
  3. CO Q 10                            /00517201/ [Concomitant]
     Dosage: 10 MG, QD
     Route: 048
  4. DEPO MEDROL [Concomitant]
     Dosage: 40 MG/ML INJECTION 80 MG IM EVERY FOUR WEEK
     Route: 030
  5. LANTUS [Concomitant]
     Dosage: 100 UNIT, UNK 50 TO 65 UNITS A DAY
     Route: 058
  6. LASIX                              /00032601/ [Concomitant]
     Dosage: 20 MG, QD PNR
     Route: 048
  7. LEXAPRO [Concomitant]
     Dosage: 20 MG, 1/2 TWICE DAILY
     Route: 048
  8. LISINOPRIL [Concomitant]
     Dosage: 40 MG, BID
     Route: 048
  9. MARINOL                            /00003301/ [Concomitant]
     Dosage: 2.5 MG, BID PNR 60
     Route: 048
  10. NOVOLOG [Concomitant]
     Dosage: 100 UNIT, PER SLIDING SCALE
     Route: 058
  11. PLAQUENIL                          /00072602/ [Concomitant]
     Dosage: 200 MG, BID
     Route: 048
  12. PREDNISONE [Concomitant]
     Dosage: 1 MG, UNK ORAL TAKE ONE PO Q AM PRN 90
     Route: 048
  13. PROTONIX [Concomitant]
     Dosage: 40 MG, QD
     Route: 048
  14. VITAMIN D3 [Concomitant]
     Dosage: 2000 UNIT, QD
     Route: 048
  15. ANTIINFLAMMATORY/ANTIRHEUMATIC PRODUCTS [Concomitant]
     Dosage: 5 MG, QD

REACTIONS (1)
  - Drug hypersensitivity [Unknown]
